FAERS Safety Report 22330605 (Version 1)
Quarter: 2023Q2

REPORT INFORMATION
  Report Type: Other
  Country: CA (occurrence: CA)
  Receive Date: 20230517
  Receipt Date: 20230517
  Transmission Date: 20230722
  Serious: Yes (Life-Threatening, Hospitalization, Other)
  Sender: FDA-Public Use
  Company Number: CA-CELLTRION INC.-2023CA010097

PATIENT

DRUGS (1)
  1. RITUXIMAB [Suspect]
     Active Substance: RITUXIMAB
     Indication: Anti-neutrophil cytoplasmic antibody positive vasculitis
     Dosage: 500 MILLIGRAM
     Route: 042

REACTIONS (6)
  - Renal impairment [Unknown]
  - Feeling abnormal [Unknown]
  - COVID-19 [Unknown]
  - COVID-19 pneumonia [Unknown]
  - Gait disturbance [Unknown]
  - Product use in unapproved indication [Unknown]
